FAERS Safety Report 6671265-0 (Version None)
Quarter: 2010Q2

REPORT INFORMATION
  Report Type: 
  Country: None (occurrence: None)
  Receive Date: 20100407
  Receipt Date: 20100330
  Transmission Date: 20101027
  Serious: Yes (Hospitalization)
  Sender: FDA-Public Use
  Company Number: US-ROCHE-674119

PATIENT
  Sex: Female

DRUGS (2)
  1. PEGINTERFERON ALFA-2A [Suspect]
     Indication: HEPATITIS C
     Dosage: FORMULATION: PRE-FILLED SYRINGE, COMPLETED 48 WEEKS OF THERAPY
     Route: 065
     Dates: start: 20090417, end: 20100316
  2. RIBAVIRIN [Suspect]
     Indication: HEPATITIS C
     Dosage: TAKEN IN DIVIDED DOSES, COMPLETED 48 WEEKS OF THERAPY
     Route: 065
     Dates: start: 20090417

REACTIONS (5)
  - ANAEMIA [None]
  - ARTHROPOD BITE [None]
  - FATIGUE [None]
  - HAEMATOCRIT DECREASED [None]
  - TREMOR [None]
